FAERS Safety Report 6011421-8 (Version None)
Quarter: 2008Q4

REPORT INFORMATION
  Report Type: 
  Country: None (occurrence: None)
  Receive Date: 20081218
  Receipt Date: 20000323
  Transmission Date: 20090506
  Serious: Yes (Death, Hospitalization, Other)
  Sender: FDA-Public Use
  Company Number: US-ROCHE-232677

PATIENT
  Age: 65 Year
  Sex: Female
  Weight: 68.9 kg

DRUGS (3)
  1. CAPECITABINE [Suspect]
     Route: 048
  2. HERCEPTIN [Suspect]
     Indication: DRUG USE FOR UNKNOWN INDICATION
     Route: 065
  3. COUMADIN [Concomitant]

REACTIONS (5)
  - ASTHENIA [None]
  - DEATH [None]
  - DIARRHOEA [None]
  - MENTAL DISORDER [None]
  - SEPSIS [None]
